FAERS Safety Report 17229278 (Version 1)
Quarter: 2020Q1

REPORT INFORMATION
  Report Type: Spontaneous
  Country: US (occurrence: US)
  Receive Date: 20200102
  Receipt Date: 20200102
  Transmission Date: 20200409
  Serious: No
  Sender: FDA-Public Use
  Company Number: None

PATIENT
  Age: 59 Year
  Sex: Female
  Weight: 67.5 kg

DRUGS (1)
  1. METHYLPHENIDATE ER 18 MG. KREMER [Suspect]
     Active Substance: METHYLPHENIDATE
     Indication: PRODUCT USED FOR UNKNOWN INDICATION
     Dosage: ?          QUANTITY:30 TABLET(S);?
     Route: 048
     Dates: start: 20191218, end: 20200102

REACTIONS (4)
  - Product substitution issue [None]
  - Irritability [None]
  - Headache [None]
  - Nausea [None]

NARRATIVE: CASE EVENT DATE: 20191219
